FAERS Safety Report 5759897-5 (Version None)
Quarter: 2008Q2

REPORT INFORMATION
  Report Type: 
  Country: None (occurrence: None)
  Receive Date: 20080605
  Receipt Date: 20080523
  Transmission Date: 20081010
  Serious: Yes (Death, Hospitalization)
  Sender: FDA-Public Use
  Company Number: FR-BRISTOL-MYERS SQUIBB COMPANY-14211320

PATIENT
  Age: 76 Year
  Sex: Female

DRUGS (11)
  1. ENDOXAN [Suspect]
     Indication: POLYARTERITIS NODOSA
     Dosage: FEB03-JUL03;AS NECESSARY.750MG;4FEB08-4MAR08;IV;EVERY 2 WEEKS.100MG;15MAR08-17APR08;ORAL;EVERY DAY.
     Route: 048
     Dates: start: 20030201, end: 20080417
  2. UROMITEXAN [Suspect]
     Indication: PROPHYLAXIS
     Dosage: 450MG;IV;2 WEEKS;4FEB08-4MAR08.400MG ORAL;EVERY DAY;15MAR08-18APR08.
     Route: 042
     Dates: start: 20080204, end: 20080418
  3. BACTRIM [Suspect]
     Indication: PROPHYLAXIS
     Dosage: 1DF=0.5 DOSE
     Route: 048
     Dates: start: 20080307, end: 20080418
  4. PANTOPRAZOLE SODIUM [Suspect]
     Indication: PROPHYLAXIS AGAINST GASTROINTESTINAL ULCER
     Route: 048
     Dates: start: 20071101, end: 20080418
  5. AMITRIPTYLINE HCL [Concomitant]
  6. RISEDRONIC ACID [Concomitant]
     Dates: end: 20080418
  7. ACTISKENAN [Concomitant]
  8. CORTANCYL [Concomitant]
  9. DOLIPRANE [Concomitant]
  10. RIMIFON [Concomitant]
     Dates: start: 20080207, end: 20080305
  11. FORLAX [Concomitant]
     Dates: start: 20080416

REACTIONS (7)
  - ANAEMIA [None]
  - CARDIAC ARREST [None]
  - ECZEMA [None]
  - NECROSIS [None]
  - PANCYTOPENIA [None]
  - SKIN LESION [None]
  - VASCULITIS [None]
